FAERS Safety Report 14022775 (Version 2)
Quarter: 2017Q4

REPORT INFORMATION
  Report Type: Spontaneous
  Country: US (occurrence: US)
  Receive Date: 20170929
  Receipt Date: 20171114
  Transmission Date: 20180321
  Serious: No
  Sender: FDA-Public Use
  Company Number: US-INCYTE CORPORATION-2017IN008115

PATIENT

DRUGS (1)
  1. JAKAFI [Suspect]
     Active Substance: RUXOLITINIB
     Indication: POLYCYTHAEMIA VERA
     Dosage: 10 MG, BID
     Route: 048
     Dates: start: 20170809

REACTIONS (5)
  - Nausea [Unknown]
  - Acne [Unknown]
  - Vomiting [Unknown]
  - Injection site haemorrhage [Unknown]
  - Food poisoning [Unknown]

NARRATIVE: CASE EVENT DATE: 201708
